FAERS Safety Report 11628152 (Version 3)
Quarter: 2015Q4

REPORT INFORMATION
  Report Type: Spontaneous
  Country: GB (occurrence: GB)
  Receive Date: 20151014
  Receipt Date: 20151223
  Transmission Date: 20160304
  Serious: Yes (Other)
  Sender: FDA-Public Use
  Company Number: GB-WATSON-2015-21661

PATIENT
  Age: 78 Year
  Sex: Female
  Weight: 68 kg

DRUGS (7)
  1. SIMVASTATIN. [Concomitant]
     Active Substance: SIMVASTATIN
     Indication: BLOOD CHOLESTEROL INCREASED
     Dosage: 1 DF, QPM
     Route: 065
     Dates: start: 20150623
  2. PARACETAMOL [Concomitant]
     Active Substance: ACETAMINOPHEN
     Indication: PAIN
     Dosage: UNK UNK, PRN; 1 OR 2 4 TIMES A DAY WHEN REQUIRED.
     Route: 065
     Dates: start: 20150623
  3. BENDROFLUMETHIAZIDE [Concomitant]
     Active Substance: BENDROFLUMETHIAZIDE
     Indication: HYPERTENSION
     Dosage: 1 DF, QAM
     Route: 065
     Dates: start: 20150623
  4. LERCANIDIPINE HYDROCHLORIDE [Concomitant]
     Active Substance: LERCANIDIPINE HYDROCHLORIDE
     Indication: HYPERTENSION
     Dosage: 2 DF, DAILY
     Route: 065
     Dates: start: 20150623
  5. RAMIPRIL (UNKNOWN) [Suspect]
     Active Substance: RAMIPRIL
     Indication: HYPERTENSION
     Dosage: 1 DF, DAILY
     Route: 065
     Dates: start: 20150623, end: 20150918
  6. ASPIRIN. [Suspect]
     Active Substance: ASPIRIN
     Indication: CARDIOVASCULAR EVENT PROPHYLAXIS
     Dosage: 1 DF, DAILY
     Route: 065
     Dates: start: 20150623, end: 20150918
  7. LANSOPRAZOLE. [Concomitant]
     Active Substance: LANSOPRAZOLE
     Indication: PRODUCT USED FOR UNKNOWN INDICATION
     Dosage: 1 DF, DAILY
     Route: 065
     Dates: start: 20150623

REACTIONS (3)
  - Swelling face [Recovered/Resolved]
  - Lip swelling [Recovered/Resolved]
  - Circumoral oedema [Recovered/Resolved]

NARRATIVE: CASE EVENT DATE: 20150915
